FAERS Safety Report 4572296-7 (Version None)
Quarter: 2005Q1

REPORT INFORMATION
  Report Type: 
  Country: None (occurrence: None)
  Receive Date: 20050203
  Receipt Date: 20050128
  Transmission Date: 20050727
  Serious: Yes (Hospitalization)
  Sender: FDA-Public Use
  Company Number: 2005SE00205

PATIENT
  Age: 67 Year
  Sex: Female
  Weight: 58 kg

DRUGS (6)
  1. BLOPRESS [Suspect]
     Indication: ESSENTIAL HYPERTENSION
     Dosage: 4 MG QD PO
     Route: 048
     Dates: start: 20041117, end: 20041224
  2. FLOMOX [Suspect]
     Indication: UPPER RESPIRATORY TRACT INFLAMMATION
     Dosage: 300 MG QD PO
     Route: 048
     Dates: start: 20041217, end: 20041224
  3. ONON [Suspect]
     Indication: UPPER RESPIRATORY TRACT INFLAMMATION
     Dosage: 450 MG QD PO
     Route: 048
     Dates: start: 20041217, end: 20041224
  4. RESPLEN [Concomitant]
  5. MEPTIN [Concomitant]
  6. MUCODYNE [Concomitant]

REACTIONS (5)
  - CELLULITIS [None]
  - MUSCLE NECROSIS [None]
  - OEDEMA PERIPHERAL [None]
  - RHABDOMYOLYSIS [None]
  - UPPER RESPIRATORY TRACT INFLAMMATION [None]
